FAERS Safety Report 16171469 (Version 4)
Quarter: 2019Q2

REPORT INFORMATION
  Report Type: Spontaneous
  Country: JP (occurrence: JP)
  Receive Date: 20190408
  Receipt Date: 20190523
  Transmission Date: 20190711
  Serious: Yes (Other)
  Sender: FDA-Public Use
  Company Number: JP-SUNOVION-2019SUN001366

PATIENT
  Age: 89 Year
  Sex: Female

DRUGS (7)
  1. LUNESTA [Suspect]
     Active Substance: ESZOPICLONE
     Indication: INSOMNIA
     Dosage: 1 MG, QD
     Route: 048
     Dates: start: 20190327, end: 20190327
  2. TERAMURO [Concomitant]
     Route: 048
  3. EDIROL [Concomitant]
     Active Substance: ELDECALCITOL
     Route: 048
  4. BEZALEX [Concomitant]
     Route: 048
  5. HOCHUEKKITO [Concomitant]
     Active Substance: HERBALS
     Route: 048
  6. SENNOSIDE [Concomitant]
     Active Substance: SENNOSIDES
     Route: 048
  7. CALONAL [Concomitant]
     Active Substance: ACETAMINOPHEN
     Dosage: UNK, AS NECESSARY
     Route: 048

REACTIONS (3)
  - Suicidal ideation [Recovered/Resolved]
  - Hallucination, visual [Recovered/Resolved]
  - Confusional state [Recovered/Resolved]

NARRATIVE: CASE EVENT DATE: 20190328
